FAERS Safety Report 11359954 (Version 4)
Quarter: 2015Q3

REPORT INFORMATION
  Report Type: Spontaneous
  Country: TH (occurrence: TH)
  Receive Date: 20150810
  Receipt Date: 20150917
  Transmission Date: 20151125
  Serious: Yes (Other)
  Sender: FDA-Public Use
  Company Number: TH-ROCHE-1618625

PATIENT
  Age: 80 Year

DRUGS (2)
  1. LUCENTIS [Suspect]
     Active Substance: RANIBIZUMAB
     Route: 050
     Dates: start: 20150728, end: 20150728
  2. LUCENTIS [Suspect]
     Active Substance: RANIBIZUMAB
     Indication: PRODUCT USED FOR UNKNOWN INDICATION
     Route: 050

REACTIONS (5)
  - Dizziness [Unknown]
  - Transient ischaemic attack [Unknown]
  - Fall [Unknown]
  - Ataxia [Unknown]
  - Cerebrovascular accident [Unknown]
